FAERS Safety Report 5739759-X (Version None)
Quarter: 2008Q2

REPORT INFORMATION
  Report Type: 
  Country: None (occurrence: None)
  Receive Date: 20080512
  Receipt Date: 20080512
  Transmission Date: 20081010
  Serious: Yes (Death)
  Sender: FDA-Public Use
  Company Number: None

PATIENT
  Age: 56 Year
  Sex: Male
  Weight: 83.9154 kg

DRUGS (2)
  1. ENBREL [Suspect]
     Indication: PSORIASIS
     Dosage: 50 MG/ML 2 TIMES A WEEK
     Dates: start: 20071020, end: 20071224
  2. ENBREL [Suspect]
     Indication: PSORIASIS
     Dosage: 50 MG/ML 2 TIMES A WEEK
     Dates: start: 20071224, end: 20071224

REACTIONS (4)
  - NASOPHARYNGITIS [None]
  - NO THERAPEUTIC RESPONSE [None]
  - PLATELET COUNT DECREASED [None]
  - SEPSIS [None]
